FAERS Safety Report 9348135 (Version 1)
Quarter: 2013Q2

REPORT INFORMATION
  Report Type: Spontaneous
  Country: CN (occurrence: CN)
  Receive Date: 20130614
  Receipt Date: 20130614
  Transmission Date: 20140414
  Serious: Yes (Other)
  Sender: FDA-Public Use
  Company Number: CN-JNJFOC-20130606075

PATIENT
  Sex: 0

DRUGS (1)
  1. LEVOFLOXACIN [Suspect]
     Indication: AZOTAEMIA
     Route: 042

REACTIONS (2)
  - Eye disorder [Unknown]
  - Adverse drug reaction [Unknown]
